FAERS Safety Report 7954809-8 (Version None)
Quarter: 2011Q4

REPORT INFORMATION
  Report Type: 
  Country: None (occurrence: None)
  Receive Date: 20111202
  Receipt Date: 20111120
  Transmission Date: 20120403
  Serious: Yes (Hospitalization)
  Sender: FDA-Public Use
  Company Number: FR-ROCHE-1014939

PATIENT
  Sex: Male

DRUGS (1)
  1. MABTHERA [Suspect]
     Indication: LYMPHOMA
     Dosage: LAST TREATMENT-/APR/2002, SECOND TREATMENT-/JUL/2003,THIRD TREATMENT-/JU/2007

REACTIONS (2)
  - CORONARY ARTERY BYPASS [None]
  - CARDIAC FLUTTER [None]
